FAERS Safety Report 22102383 (Version 1)
Quarter: 2023Q1

REPORT INFORMATION
  Report Type: Spontaneous
  Country: CA (occurrence: None)
  Receive Date: 20230316
  Receipt Date: 20230316
  Transmission Date: 20230418
  Serious: Yes (Life-Threatening, Hospitalization)
  Sender: FDA-Public Use
  Company Number: CA-ROCHE-3308979

PATIENT
  Age: 50 Year
  Sex: Male
  Weight: 123 kg

DRUGS (16)
  1. TNKASE [Suspect]
     Active Substance: TENECTEPLASE
     Indication: Myocardial infarction
     Route: 040
  2. PLAVIX [Suspect]
     Active Substance: CLOPIDOGREL BISULFATE
     Indication: Myocardial infarction
     Route: 048
  3. INTEGRILIN [Suspect]
     Active Substance: EPTIFIBATIDE
     Indication: Myocardial infarction
     Route: 065
  4. HEPARIN SODIUM [Suspect]
     Active Substance: HEPARIN SODIUM
     Indication: Myocardial infarction
     Dosage: 1000.0 UNITS
     Route: 042
  5. ASPIRIN [Suspect]
     Active Substance: ASPIRIN
     Indication: Myocardial infarction
     Route: 048
  6. ACETAMINOPHEN [Concomitant]
     Active Substance: ACETAMINOPHEN
  7. BISOPROLOL [Concomitant]
     Active Substance: BISOPROLOL
     Route: 065
  8. DIMENHYDRINATE [Concomitant]
     Active Substance: DIMENHYDRINATE
  9. FENTANYL CITRATE [Concomitant]
     Active Substance: FENTANYL CITRATE
     Route: 062
  10. LORAZEPAM [Concomitant]
     Active Substance: LORAZEPAM
     Route: 065
  11. METOPROLOL [Concomitant]
     Active Substance: METOPROLOL
     Route: 065
  12. MORPHINE [Concomitant]
     Active Substance: MORPHINE
  13. NICOTINE [Concomitant]
     Active Substance: NICOTINE
  14. NITROGLYCERIN [Concomitant]
     Active Substance: NITROGLYCERIN
  15. PANTOPRAZOLE [Concomitant]
     Active Substance: PANTOPRAZOLE
  16. PERINDOPRIL [Concomitant]
     Active Substance: PERINDOPRIL

REACTIONS (4)
  - Gastrointestinal haemorrhage [Recovering/Resolving]
  - Haemoglobin decreased [Recovering/Resolving]
  - Haemostasis [Recovering/Resolving]
  - Transfusion [Recovering/Resolving]
